FAERS Safety Report 7250792-1 (Version None)
Quarter: 2011Q1

REPORT INFORMATION
  Report Type: 
  Country: None (occurrence: None)
  Receive Date: 20110128
  Receipt Date: 20110120
  Transmission Date: 20110831
  Serious: Yes (Hospitalization)
  Sender: FDA-Public Use
  Company Number: KR-BRISTOL-MYERS SQUIBB COMPANY-15470099

PATIENT
  Age: 35 Year
  Sex: Female
  Weight: 48 kg

DRUGS (3)
  1. CETUXIMAB [Suspect]
     Indication: GASTROOESOPHAGEAL CANCER
     Dosage: MOST RECENT INF ON 21DEC10.
     Route: 042
     Dates: start: 20101008
  2. CISPLATIN [Suspect]
     Indication: GASTROOESOPHAGEAL CANCER
     Dosage: ON DAY 1 OF CYCLE,RECENT INF ON 21DEC10
     Route: 042
     Dates: start: 20101008
  3. XELODA [Suspect]
     Indication: GASTROOESOPHAGEAL CANCER
     Dosage: ON DAY 1-15,TAB, RECENT DOSE ON 22DEC10.
     Route: 048
     Dates: start: 20101008

REACTIONS (1)
  - HYPOPHAGIA [None]
